FAERS Safety Report 4899312-7 (Version None)
Quarter: 2006Q1

REPORT INFORMATION
  Report Type: 
  Country: None (occurrence: None)
  Receive Date: 20060131
  Receipt Date: 20060124
  Transmission Date: 20060701
  Serious: Yes (Other)
  Sender: FDA-Public Use
  Company Number: HQWYE257119JUL05

PATIENT
  Age: 50 Year
  Sex: Female

DRUGS (29)
  1. RAPAMUNE [Suspect]
     Indication: PROPHYLAXIS AGAINST TRANSPLANT REJECTION
     Dosage: SEE IMAGE
     Route: 048
     Dates: start: 20050601, end: 20050601
  2. RAPAMUNE [Suspect]
     Indication: PROPHYLAXIS AGAINST TRANSPLANT REJECTION
     Dosage: SEE IMAGE
     Route: 048
     Dates: start: 20050602, end: 20050610
  3. RAPAMUNE [Suspect]
     Indication: PROPHYLAXIS AGAINST TRANSPLANT REJECTION
     Dosage: SEE IMAGE
     Route: 048
     Dates: start: 20050611, end: 20050706
  4. RAPAMUNE [Suspect]
     Indication: PROPHYLAXIS AGAINST TRANSPLANT REJECTION
     Dosage: SEE IMAGE
     Route: 048
     Dates: start: 20050707, end: 20050720
  5. RAPAMUNE [Suspect]
     Indication: PROPHYLAXIS AGAINST TRANSPLANT REJECTION
     Dosage: SEE IMAGE
     Route: 048
     Dates: start: 20050721, end: 20051205
  6. RAPAMUNE [Suspect]
     Indication: PROPHYLAXIS AGAINST TRANSPLANT REJECTION
     Dosage: SEE IMAGE
     Route: 048
     Dates: start: 20051206
  7. CYCLOSPORINE [Suspect]
     Dosage: SEE IMAGE
     Route: 048
     Dates: start: 20050601, end: 20050609
  8. CYCLOSPORINE [Suspect]
     Dosage: SEE IMAGE
     Route: 048
     Dates: start: 20050610, end: 20050613
  9. CYCLOSPORINE [Suspect]
     Dosage: SEE IMAGE
     Route: 048
     Dates: start: 20050614, end: 20050616
  10. CYCLOSPORINE [Suspect]
     Dosage: SEE IMAGE
     Route: 048
     Dates: start: 20050617, end: 20050720
  11. CYCLOSPORINE [Suspect]
     Dosage: SEE IMAGE
     Route: 048
     Dates: start: 20050722, end: 20051019
  12. SIMVASTATIN [Concomitant]
  13. INSULIN [Concomitant]
  14. NPH INSULIN [Concomitant]
  15. AMLODIPINE [Concomitant]
  16. AMLODIPINE [Concomitant]
  17. OMEPRAZOLE [Concomitant]
  18. BACTRIM [Concomitant]
  19. LOSARTAN POTASSIUM [Concomitant]
  20. PREDNISONE [Concomitant]
  21. PREDNISONE [Concomitant]
  22. PREDNISONE [Concomitant]
  23. PREDNISONE [Concomitant]
  24. PREDNISONE [Concomitant]
  25. PREDNISONE [Concomitant]
  26. PREDNISONE [Concomitant]
  27. PREDNISONE [Concomitant]
  28. FUROSEMIDE [Concomitant]
  29. VITAMIN B COMPLEX TAB [Concomitant]

REACTIONS (1)
  - PROTEINURIA [None]
